FAERS Safety Report 16972092 (Version 1)
Quarter: 2019Q4

REPORT INFORMATION
  Report Type: Spontaneous
  Country: US (occurrence: US)
  Receive Date: 20191029
  Receipt Date: 20191029
  Transmission Date: 20200122
  Serious: Yes (Other)
  Sender: FDA-Public Use
  Company Number: US-TEVA-2019-US-1128873

PATIENT
  Age: 9 Decade
  Sex: Male

DRUGS (2)
  1. HYDROXYCARBAMIDE [Suspect]
     Active Substance: HYDROXYUREA
     Indication: POLYCYTHAEMIA VERA
     Route: 065
  2. RUXOLITINIB [Suspect]
     Active Substance: RUXOLITINIB
     Indication: POLYCYTHAEMIA VERA
     Route: 065

REACTIONS (4)
  - Squamous cell carcinoma [Not Recovered/Not Resolved]
  - Rash [Recovering/Resolving]
  - Rash pustular [Recovering/Resolving]
  - Photosensitivity reaction [Recovering/Resolving]
